FAERS Safety Report 10369295 (Version 2)
Quarter: 2014Q3

REPORT INFORMATION
  Report Type: Spontaneous
  Country: US (occurrence: US)
  Receive Date: 20140807
  Receipt Date: 20140807
  Transmission Date: 20150326
  Serious: Yes (Hospitalization, Other)
  Sender: FDA-Public Use
  Company Number: US-009507513-2011SP051273

PATIENT
  Sex: Female
  Weight: 95.26 kg

DRUGS (1)
  1. NUVARING [Suspect]
     Active Substance: ETHINYL ESTRADIOL\ETONOGESTREL
     Indication: CONTRACEPTION
     Route: 067
     Dates: start: 2004, end: 20091117

REACTIONS (13)
  - Pulmonary embolism [Recovered/Resolved]
  - Mesenteric vein thrombosis [Unknown]
  - Hepatitis [Unknown]
  - Urinary tract infection [Unknown]
  - Unintended pregnancy [Recovered/Resolved]
  - Splenomegaly [Unknown]
  - Cholecystitis [Unknown]
  - Cholelithiasis [Unknown]
  - Appendicitis [Recovered/Resolved]
  - Deep vein thrombosis [Recovered/Resolved]
  - Hepatic steatosis [Unknown]
  - Biliary fibrosis [Unknown]
  - Depression [Unknown]

NARRATIVE: CASE EVENT DATE: 20050225
